FAERS Safety Report 19524650 (Version 1)
Quarter: 2021Q3

REPORT INFORMATION
  Report Type: Spontaneous
  Country: US (occurrence: US)
  Receive Date: 20210712
  Receipt Date: 20210712
  Transmission Date: 20211014
  Serious: Yes (Other)
  Sender: FDA-Public Use
  Company Number: US-ENDO PHARMACEUTICALS INC-2021-002947

PATIENT
  Age: 63 Year
  Sex: Female

DRUGS (16)
  1. RANITIDINE. [Suspect]
     Active Substance: RANITIDINE
     Indication: IRRITABLE BOWEL SYNDROME
  2. RANITIDINE. [Suspect]
     Active Substance: RANITIDINE
     Indication: GASTRITIS
  3. ZANTAC [Suspect]
     Active Substance: RANITIDINE HYDROCHLORIDE
     Indication: BARRETT^S OESOPHAGUS
     Dosage: 150 MG, BID
     Route: 065
     Dates: start: 198801, end: 201911
  4. ZANTAC [Suspect]
     Active Substance: RANITIDINE HYDROCHLORIDE
     Indication: IRRITABLE BOWEL SYNDROME
  5. ZANTAC [Suspect]
     Active Substance: RANITIDINE HYDROCHLORIDE
     Indication: GASTRITIS
  6. RANITIDINE. [Suspect]
     Active Substance: RANITIDINE
     Indication: BARRETT^S OESOPHAGUS
     Dosage: UNK UNKNOWN, DAILY
     Route: 065
     Dates: start: 199706, end: 201911
  7. ZANTAC [Suspect]
     Active Substance: RANITIDINE HYDROCHLORIDE
     Indication: COLITIS
  8. ZANTAC [Suspect]
     Active Substance: RANITIDINE HYDROCHLORIDE
     Indication: COLITIS
  9. RANITIDINE HYDROCHLORIDE. [Suspect]
     Active Substance: RANITIDINE HYDROCHLORIDE
     Indication: GASTRITIS
  10. ZANTAC [Suspect]
     Active Substance: RANITIDINE HYDROCHLORIDE
     Indication: GASTRITIS
  11. RANITIDINE HYDROCHLORIDE. [Suspect]
     Active Substance: RANITIDINE HYDROCHLORIDE
     Indication: BARRETT^S OESOPHAGUS
     Dosage: UNK UNKNOWN, DAILY
     Route: 065
     Dates: start: 199706, end: 201911
  12. RANITIDINE. [Suspect]
     Active Substance: RANITIDINE
     Indication: COLITIS
  13. RANITIDINE HYDROCHLORIDE. [Suspect]
     Active Substance: RANITIDINE HYDROCHLORIDE
     Indication: IRRITABLE BOWEL SYNDROME
  14. ZANTAC [Suspect]
     Active Substance: RANITIDINE HYDROCHLORIDE
     Indication: IRRITABLE BOWEL SYNDROME
  15. RANITIDINE HYDROCHLORIDE. [Suspect]
     Active Substance: RANITIDINE HYDROCHLORIDE
     Indication: COLITIS
  16. ZANTAC [Suspect]
     Active Substance: RANITIDINE HYDROCHLORIDE
     Indication: BARRETT^S OESOPHAGUS
     Dosage: 150 MG, BID
     Route: 065
     Dates: start: 198801, end: 201911

REACTIONS (2)
  - Bladder cancer [Recovering/Resolving]
  - Breast cancer stage I [Recovering/Resolving]

NARRATIVE: CASE EVENT DATE: 20080801
